FAERS Safety Report 12978715 (Version 3)
Quarter: 2019Q1

REPORT INFORMATION
  Report Type: Spontaneous
  Country: AU (occurrence: AU)
  Receive Date: 20161128
  Receipt Date: 20190307
  Transmission Date: 20190417
  Serious: Yes (Other)
  Sender: FDA-Public Use
  Company Number: AU-SEPTODONT-201603607

PATIENT
  Age: 25 Year
  Sex: Female

DRUGS (3)
  1. XYLOCAINE [Concomitant]
     Active Substance: LIDOCAINE HYDROCHLORIDE
     Indication: LOCAL ANAESTHESIA
     Route: 061
     Dates: start: 20160915
  2. LIGNOSPAN SPECIAL [Suspect]
     Active Substance: EPINEPHRINE BITARTRATE\LIDOCAINE HYDROCHLORIDE
     Indication: LOCAL ANAESTHESIA
     Dosage: BY IANB
     Route: 004
     Dates: start: 20160915
  3. SEPTANEST 1/100.000 [Suspect]
     Active Substance: ARTICAINE HYDROCHLORIDE\EPINEPHRINE HYDROCHLORIDE
     Indication: LOCAL ANAESTHESIA
     Dosage: BY INFILTRATION
     Route: 004
     Dates: start: 20160915

REACTIONS (4)
  - Hypersensitivity [Unknown]
  - Anaphylactoid reaction [Recovering/Resolving]
  - Periorbital swelling [Recovering/Resolving]
  - Pharyngeal oedema [Unknown]

NARRATIVE: CASE EVENT DATE: 20160915
